FAERS Safety Report 5066185-1 (Version None)
Quarter: 2006Q3

REPORT INFORMATION
  Report Type: 
  Country: None (occurrence: None)
  Receive Date: 20060703
  Receipt Date: 20060228
  Transmission Date: 20061208
  Serious: Yes (Other)
  Sender: FDA-Public Use
  Company Number: WAES 0603USA01109

PATIENT
  Age: 54 Year
  Sex: Female
  Weight: 108.4097 kg

DRUGS (4)
  1. HYZAAR [Suspect]
     Indication: HYPERTENSION
     Dosage: 50-12.5 MG/DAILY/PO
     Route: 048
     Dates: start: 20060225, end: 20060228
  2. MUCINEX [Concomitant]
  3. NASACORT [Concomitant]
  4. AMOXICILLIN [Concomitant]

REACTIONS (2)
  - DIARRHOEA [None]
  - MIGRAINE [None]
